FAERS Safety Report 4472867-2 (Version None)
Quarter: 2004Q4

REPORT INFORMATION
  Report Type: 
  Country: None (occurrence: None)
  Receive Date: 20041012
  Receipt Date: 20041012
  Transmission Date: 20050328
  Serious: Yes (Hospitalization)
  Sender: FDA-Public Use
  Company Number: None

PATIENT
  Age: 59 Year
  Sex: Male
  Weight: 79.1 kg

DRUGS (2)
  1. SULFAMETHOXAZOLE + TRIMETHOPRIM [Suspect]
     Indication: URINARY TRACT INFECTION
     Dosage: DS Q 12H, Q 12H, ORAL
     Route: 048
     Dates: start: 20040623, end: 20040625
  2. AMPICILLIN CAP [Concomitant]

REACTIONS (1)
  - RASH [None]
